FAERS Safety Report 18569739 (Version 1)
Quarter: 2020Q4

REPORT INFORMATION
  Report Type: Spontaneous
  Country: US (occurrence: US)
  Receive Date: 20201201
  Receipt Date: 20201201
  Transmission Date: 20210114
  Serious: Yes (Death, Hospitalization)
  Sender: FDA-Public Use
  Company Number: None

PATIENT
  Age: 43 Year
  Sex: Female
  Weight: 53.9 kg

DRUGS (2)
  1. CISPLATIN. [Suspect]
     Active Substance: CISPLATIN
     Dates: end: 20201029
  2. GEMCITABINE HYDROCHLORIDE. [Suspect]
     Active Substance: GEMCITABINE HYDROCHLORIDE
     Dates: end: 20201029

REACTIONS (9)
  - Condition aggravated [None]
  - Vomiting [None]
  - Abdominal pain [None]
  - Hypoxia [None]
  - Lymphangiosis carcinomatosa [None]
  - Disease progression [None]
  - Nausea [None]
  - Cholangitis [None]
  - Dyspnoea [None]

NARRATIVE: CASE EVENT DATE: 20201118
